FAERS Safety Report 24712914 (Version 1)
Quarter: 2024Q4

REPORT INFORMATION
  Report Type: Spontaneous
  Country: PL (occurrence: PL)
  Receive Date: 20241209
  Receipt Date: 20241209
  Transmission Date: 20250114
  Serious: Yes (Other)
  Sender: BAYER HEALTHCARE PHARMACEUTICALS INC.
  Company Number: PL-BAYER-2024A172135

PATIENT
  Age: 10 Year
  Sex: Female

DRUGS (3)
  1. SORAFENIB [Suspect]
     Active Substance: SORAFENIB
     Indication: Acute leukaemia
     Dosage: 200 MG/M2
     Dates: start: 2022, end: 202209
  2. SORAFENIB [Suspect]
     Active Substance: SORAFENIB
     Indication: Acute leukaemia
     Dosage: 200 MG/M2
     Dates: start: 202210, end: 202212
  3. SORAFENIB [Suspect]
     Active Substance: SORAFENIB
     Indication: Acute leukaemia
     Dosage: UNK
     Dates: start: 202309

REACTIONS (4)
  - Cytokine release syndrome [None]
  - Thrombocytopenia [None]
  - Product use in unapproved indication [None]
  - Product use issue [None]

NARRATIVE: CASE EVENT DATE: 20220101
